FAERS Safety Report 10956157 (Version 1)
Quarter: 2015Q1

REPORT INFORMATION
  Report Type: Spontaneous
  Country: US (occurrence: None)
  Receive Date: 20150226
  Receipt Date: 20150226
  Transmission Date: 20150721
  Serious: Yes (Hospitalization, Other)
  Sender: FDA-Public Use
  Company Number: TPA2012A00559

PATIENT
  Age: 69 Year
  Sex: Male
  Weight: 94.35 kg

DRUGS (3)
  1. INSULIN NPH HOMOLOG (INSULIN ISOPHANE BOVINE) [Concomitant]
  2. VOSCTEK (CALCIUM CITRATE, GLUCOSAMINE, CHONDROITIN SULFATE, IPRIFLAVONE) [Concomitant]
  3. ACTOS [Suspect]
     Active Substance: PIOGLITAZONE HYDROCHLORIDE
     Indication: TYPE 2 DIABETES MELLITUS
     Dosage: 1 IN 1D
     Route: 048
     Dates: start: 20070418, end: 20120127

REACTIONS (3)
  - Bladder cancer [None]
  - Benign prostatic hyperplasia [None]
  - Haematuria [None]
